FAERS Safety Report 10024516 (Version 1)
Quarter: 2014Q1

REPORT INFORMATION
  Report Type: Spontaneous
  Country: US (occurrence: US)
  Receive Date: 20140320
  Receipt Date: 20140320
  Transmission Date: 20141002
  Serious: No
  Sender: FDA-Public Use
  Company Number: US-ENDO PHARMACEUTICALS INC.-OPCR20140020

PATIENT
  Age: 36 Year
  Sex: Male
  Weight: 77.18 kg

DRUGS (2)
  1. OPANA ER 40MG [Suspect]
     Indication: BACK PAIN
     Route: 048
     Dates: end: 20140110
  2. OPANA ER 40MG [Suspect]
     Indication: NECK PAIN

REACTIONS (2)
  - Paraesthesia [Not Recovered/Not Resolved]
  - Withdrawal syndrome [Not Recovered/Not Resolved]
